FAERS Safety Report 8462046-6 (Version None)
Quarter: 2012Q2

REPORT INFORMATION
  Report Type: 
  Country: None (occurrence: None)
  Receive Date: 20120625
  Receipt Date: 20120619
  Transmission Date: 20120825
  Serious: Yes (Other)
  Sender: FDA-Public Use
  Company Number: BR-PFIZER INC-2012148670

PATIENT
  Age: 58 Year
  Sex: Male
  Weight: 91 kg

DRUGS (6)
  1. DICLOFENAC [Concomitant]
  2. GABAPENTIN [Concomitant]
  3. PARACETAMOL [Concomitant]
  4. AREDIA [Concomitant]
     Indication: BONE LESION
     Dosage: 500 UL, ONCE MONTHLY
  5. CODEINE [Concomitant]
  6. SUTENT [Suspect]
     Indication: RENAL CANCER
     Dosage: 50 MG, ONCE WEEKLY (FIRST CYCLE)
     Route: 048
     Dates: start: 20120607

REACTIONS (6)
  - ERYSIPELAS [None]
  - RASH [None]
  - PRURITUS [None]
  - PAIN IN EXTREMITY [None]
  - DRY SKIN [None]
  - CHROMATURIA [None]
